FAERS Safety Report 19427205 (Version 1)
Quarter: 2021Q2

REPORT INFORMATION
  Report Type: Spontaneous
  Country: JP (occurrence: JP)
  Receive Date: 20210617
  Receipt Date: 20210617
  Transmission Date: 20210717
  Serious: Yes (Death)
  Sender: FDA-Public Use
  Company Number: JP-JNJFOC-20210633553

PATIENT
  Age: 80 Year
  Sex: Male
  Weight: 77.8 kg

DRUGS (3)
  1. BEPOTASTINE BESILATE [Concomitant]
     Active Substance: BEPOTASTINE BESYLATE
     Indication: RASH
     Dosage: DOSE UNKNOWN
     Route: 048
  2. APALUTAMIDE [Suspect]
     Active Substance: APALUTAMIDE
     Indication: HORMONE-REFRACTORY PROSTATE CANCER
     Route: 048
     Dates: start: 20200502, end: 20200727
  3. METHADERM [Concomitant]
     Active Substance: DEXAMETHASONE DIPROPIONATE
     Indication: RASH
     Dosage: DOSE UNKNOWN
     Route: 061

REACTIONS (2)
  - Cardiac tamponade [Fatal]
  - Aortic dissection [Fatal]
